FAERS Safety Report 8337461-1 (Version None)
Quarter: 2012Q2

REPORT INFORMATION
  Report Type: 
  Country: None (occurrence: None)
  Receive Date: 20120504
  Receipt Date: 20120430
  Transmission Date: 20120825
  Serious: Yes (Other)
  Sender: FDA-Public Use
  Company Number: US-PFIZER INC-2012089818

PATIENT
  Sex: Female
  Weight: 71.202 kg

DRUGS (3)
  1. PREMARIN [Suspect]
     Indication: OFF LABEL USE
     Dosage: UNK, 3X/WEEK
     Route: 067
     Dates: start: 20010101
  2. PREMARIN [Suspect]
     Indication: PROPHYLAXIS URINARY TRACT INFECTION
  3. PREMARIN [Suspect]
     Indication: INCONTINENCE

REACTIONS (3)
  - HAEMORRHAGE [None]
  - VAGINAL HAEMORRHAGE [None]
  - HERPES ZOSTER [None]
